FAERS Safety Report 17154084 (Version 5)
Quarter: 2020Q2

REPORT INFORMATION
  Report Type: Spontaneous
  Country: US (occurrence: US)
  Receive Date: 20191213
  Receipt Date: 20200507
  Transmission Date: 20200713
  Serious: Yes (Hospitalization, Other)
  Sender: FDA-Public Use
  Company Number: US-ACTELION-A-NJ2019-199075

PATIENT
  Age: 72 Year
  Sex: Female
  Weight: 56.69 kg

DRUGS (2)
  1. OPSUMIT [Suspect]
     Active Substance: MACITENTAN
     Indication: PULMONARY ARTERIAL HYPERTENSION
     Dosage: 10 MG, QD
     Route: 048
  2. XARELTO [Concomitant]
     Active Substance: RIVAROXABAN

REACTIONS (9)
  - Urinary tract infection [Unknown]
  - Dysphonia [Unknown]
  - Pneumonia [Unknown]
  - Cough [Unknown]
  - Headache [Unknown]
  - Sinusitis [Unknown]
  - Oropharyngeal pain [Unknown]
  - Septic shock [Unknown]
  - Upper respiratory tract infection [Unknown]

NARRATIVE: CASE EVENT DATE: 201912
